FAERS Safety Report 8284197-1 (Version None)
Quarter: 2012Q2

REPORT INFORMATION
  Report Type: 
  Country: None (occurrence: None)
  Receive Date: 20120413
  Receipt Date: 20110901
  Transmission Date: 20120825
  Serious: No
  Sender: FDA-Public Use
  Company Number: US-ASTRAZENECA-2011SE52952

PATIENT
  Sex: Female

DRUGS (11)
  1. LIPITOR [Concomitant]
  2. SYNTHROID [Concomitant]
  3. CHOLECALCIFEROL VITAMIN D3 [Concomitant]
  4. GLIPIZIDE [Concomitant]
  5. ZOLOFT [Concomitant]
  6. NEURONTIN [Concomitant]
  7. IBUPROFEN [Concomitant]
  8. NEXIUM [Suspect]
     Route: 048
  9. ESTROPIPATE [Concomitant]
  10. AMBIEN [Concomitant]
     Indication: INSOMNIA
  11. METFORMIN HCL [Concomitant]

REACTIONS (2)
  - PAIN IN EXTREMITY [None]
  - INSOMNIA [None]
